FAERS Safety Report 21876207 (Version 2)
Quarter: 2023Q1

REPORT INFORMATION
  Report Type: Spontaneous
  Country: JP (occurrence: JP)
  Receive Date: 20230118
  Receipt Date: 20230207
  Transmission Date: 20230417
  Serious: Yes (Death, Hospitalization, Other)
  Sender: FDA-Public Use
  Company Number: JP-ONO-2022JP004322

PATIENT
  Age: 71 Year
  Sex: Male
  Weight: 47.4 kg

DRUGS (5)
  1. OPDIVO [Suspect]
     Active Substance: NIVOLUMAB
     Indication: Gastric cancer
     Dosage: UNK
     Route: 041
     Dates: start: 20210929, end: 20220217
  2. VONOPRAZAN FUMARATE [Concomitant]
     Active Substance: VONOPRAZAN FUMARATE
     Route: 048
     Dates: start: 20210330
  3. SUCRALFATE [Concomitant]
     Active Substance: SUCRALFATE
     Route: 048
     Dates: start: 20210702
  4. CARBOHYDRATES\FATTY ACIDS\MINERALS\PROTEIN\VITAMINS [Concomitant]
     Active Substance: CARBOHYDRATES\FATTY ACIDS\MINERALS\PROTEIN\VITAMINS
     Indication: Prophylaxis
     Dosage: 100 MILLILITER, 2 TO 3 TIMES, SOLUTION (EXCEPT SYRUP)
     Route: 048
     Dates: start: 20211029
  5. POTASSIUM ASPARTATE [Concomitant]
     Active Substance: POTASSIUM ASPARTATE
     Indication: Prophylaxis
     Route: 048
     Dates: start: 20210204, end: 20210218

REACTIONS (13)
  - Peripheral sensorimotor neuropathy [Unknown]
  - Tumour perforation [Fatal]
  - Peritonitis [Fatal]
  - Muscular weakness [Not Recovered/Not Resolved]
  - Muscle atrophy [Unknown]
  - Aldolase increased [Unknown]
  - Antinuclear antibody increased [Unknown]
  - Hypoglycaemia [Unknown]
  - Immune-mediated myositis [Unknown]
  - Vitamin B1 deficiency [Unknown]
  - Folate deficiency [Unknown]
  - Face oedema [Unknown]
  - Dermatomyositis [Unknown]

NARRATIVE: CASE EVENT DATE: 20220101
